FAERS Safety Report 8943395 (Version 1)
Quarter: 2012Q4

REPORT INFORMATION
  Report Type: 
  Country: US (occurrence: US)
  Receive Date: 20121204
  Receipt Date: 20121204
  Transmission Date: 20130627
  Serious: Yes (Other)
  Sender: FDA-Public Use
  Company Number: US-PFIZER INC-2012300074

PATIENT
  Sex: Female

DRUGS (2)
  1. NEURONTIN [Suspect]
     Dosage: UNK
     Route: 065
     Dates: start: 201208
  2. LIDOCAINE HYDROCHLORIDE [Suspect]
     Dosage: LIDOCAINE HYDROCHLORIDE IN 5% DEXTROSE INJECTION

REACTIONS (2)
  - Suicidal ideation [Recovering/Resolving]
  - Burning sensation [Recovering/Resolving]
